FAERS Safety Report 15826831 (Version 1)
Quarter: 2019Q1

REPORT INFORMATION
  Report Type: Spontaneous
  Country: JP (occurrence: JP)
  Receive Date: 20190115
  Receipt Date: 20190115
  Transmission Date: 20190417
  Serious: Yes (Other)
  Sender: FDA-Public Use
  Company Number: JP-SA-2019SA006576

PATIENT
  Age: 84 Year
  Sex: Male

DRUGS (1)
  1. AFLIBERCEPT [Suspect]
     Active Substance: AFLIBERCEPT
     Indication: AGE-RELATED MACULAR DEGENERATION
     Route: 031

REACTIONS (6)
  - Vitreous opacities [Unknown]
  - Corneal disorder [Unknown]
  - Endophthalmitis [Unknown]
  - Retinal vasculitis [Unknown]
  - Corneal oedema [Unknown]
  - Hypopyon [Unknown]
